FAERS Safety Report 5371493-0 (Version None)
Quarter: 2007Q2

REPORT INFORMATION
  Report Type: 
  Country: None (occurrence: None)
  Receive Date: 20070622
  Receipt Date: 20070614
  Transmission Date: 20071010
  Serious: Yes (Hospitalization)
  Sender: FDA-Public Use
  Company Number: 2007324197

PATIENT
  Age: 80 Year
  Sex: Female
  Weight: 64.4108 kg

DRUGS (2)
  1. ROGAINE [Suspect]
     Indication: ALOPECIA
     Dosage: ^RECOMMENDED AMOUNT^,TOPICAL
     Route: 061
     Dates: start: 20040101
  2. HYDROCHLOROTHIAZIDE [Concomitant]

REACTIONS (1)
  - DIARRHOEA [None]
